FAERS Safety Report 6252735-6 (Version None)
Quarter: 2009Q2

REPORT INFORMATION
  Report Type: 
  Country: None (occurrence: None)
  Receive Date: 20090629
  Receipt Date: 20090629
  Transmission Date: 20091009
  Serious: Yes (Hospitalization)
  Sender: FDA-Public Use
  Company Number: None

PATIENT
  Sex: Male
  Weight: 69 kg

DRUGS (3)
  1. DAUNORUBICIN HCL [Suspect]
     Dosage: 480 MG
     Dates: end: 20080612
  2. ETOPOSIDE [Suspect]
     Dosage: 540 MG
     Dates: end: 20080612
  3. CYTARABINE [Suspect]
     Dosage: 1260 MG
     Dates: end: 20080617

REACTIONS (9)
  - CARDIOTOXICITY [None]
  - CORONARY ARTERY DISEASE [None]
  - DISEASE PROGRESSION [None]
  - EJECTION FRACTION DECREASED [None]
  - LEUKAEMIA RECURRENT [None]
  - PANCYTOPENIA [None]
  - REFUSAL OF TREATMENT BY PATIENT [None]
  - THROMBOCYTOPENIA [None]
  - VENTRICULAR HYPOKINESIA [None]
